FAERS Safety Report 15301094 (Version 1)
Quarter: 2018Q4

REPORT INFORMATION
  Report Type: Spontaneous
  Country: IT (occurrence: IT)
  Receive Date: 20180821
  Receipt Date: 20180821
  Transmission Date: 20190204
  Serious: Yes (Life-Threatening)
  Sender: FDA-Public Use
  Company Number: IND-IT-009507513-1808ITA007073

PATIENT
  Age: 44 Year
  Sex: Female
  Weight: 75 kg

DRUGS (1)
  1. ARCOXIA [Suspect]
     Active Substance: ETORICOXIB
     Indication: ARTHRITIS
     Dosage: 60 MG, QD
     Route: 048
     Dates: start: 20180708, end: 20180718

REACTIONS (3)
  - Dyspnoea [Recovering/Resolving]
  - Gravitational oedema [Recovering/Resolving]
  - Diplopia [Recovering/Resolving]

NARRATIVE: CASE EVENT DATE: 20180716
